FAERS Safety Report 18466054 (Version 1)
Quarter: 2020Q4

REPORT INFORMATION
  Report Type: Spontaneous
  Country: US (occurrence: US)
  Receive Date: 20201104
  Receipt Date: 20201104
  Transmission Date: 20210114
  Serious: Yes (Other)
  Sender: FDA-Public Use
  Company Number: US-PURDUE-USA-2020-0156252

PATIENT

DRUGS (3)
  1. OXYCONTIN [Suspect]
     Active Substance: OXYCODONE HYDROCHLORIDE
     Indication: PRODUCT USED FOR UNKNOWN INDICATION
     Dosage: 80 MG X 2, Q8H
     Route: 048
  2. OXYCONTIN [Suspect]
     Active Substance: OXYCODONE HYDROCHLORIDE
     Dosage: 60 MG X 2, Q8H
     Route: 048
  3. OXYCODONE HYDROCHLORIDE (SIMILAR TO NDA 22-272) [Suspect]
     Active Substance: OXYCODONE HYDROCHLORIDE
     Indication: PRODUCT USED FOR UNKNOWN INDICATION
     Dosage: 30 MG X 2, Q4H
     Route: 048

REACTIONS (6)
  - Off label use [Unknown]
  - Loss of personal independence in daily activities [Not Recovered/Not Resolved]
  - Suicide attempt [Unknown]
  - Depression [Not Recovered/Not Resolved]
  - Product prescribing issue [Not Recovered/Not Resolved]
  - Pain [Not Recovered/Not Resolved]
